FAERS Safety Report 19454017 (Version 8)
Quarter: 2025Q3

REPORT INFORMATION
  Report Type: Spontaneous
  Country: EU (occurrence: EU)
  Receive Date: 20210623
  Receipt Date: 20250807
  Transmission Date: 20251020
  Serious: Yes (Life-Threatening, Other)
  Sender: NOVARTIS
  Company Number: EU-NOVARTISPH-NVSC2021PL140198

PATIENT
  Age: 70 Year
  Sex: Male

DRUGS (4)
  1. IMATINIB [Suspect]
     Active Substance: IMATINIB
     Indication: Gastrointestinal stromal tumour
     Dosage: 800 MG, QD
     Route: 065
     Dates: start: 201801
  2. IMATINIB [Suspect]
     Active Substance: IMATINIB
     Indication: Metastases to liver
     Dosage: 600 MG, QD
     Route: 065
     Dates: start: 201801, end: 201810
  3. IMATINIB [Suspect]
     Active Substance: IMATINIB
     Dosage: 400 MG, QD
     Route: 065
     Dates: start: 201801
  4. IMATINIB [Suspect]
     Active Substance: IMATINIB
     Dosage: 800 MG, QD, 800 MILLIGRAM, ONCE A DAY (800 MILLIGRAM, QD)
     Route: 065

REACTIONS (6)
  - Drug resistance [Unknown]
  - Skin toxicity [Unknown]
  - Fluid retention [Unknown]
  - Gastrointestinal stromal tumour [Unknown]
  - Malignant neoplasm progression [Unknown]
  - Drug ineffective [Unknown]
